FAERS Safety Report 5233039-7 (Version None)
Quarter: 2007Q1

REPORT INFORMATION
  Report Type: 
  Country: None (occurrence: None)
  Receive Date: 20070207
  Receipt Date: 20070205
  Transmission Date: 20070707
  Serious: Yes (Other)
  Sender: FDA-Public Use
  Company Number: AU-ROXANE LABORATORIES, INC-2007-DE-00686GD

PATIENT
  Age: 74 Year
  Sex: Male

DRUGS (2)
  1. NAPROXEN [Suspect]
  2. OMEPRAZOLE [Suspect]
     Indication: GASTROOESOPHAGEAL REFLUX DISEASE

REACTIONS (5)
  - ANOREXIA [None]
  - NEPHRITIS INTERSTITIAL [None]
  - NOCTURIA [None]
  - THIRST [None]
  - WEIGHT DECREASED [None]
